FAERS Safety Report 8798592 (Version 1)
Quarter: 2012Q4

REPORT INFORMATION
  Report Type: 
  Country: US (occurrence: US)
  Receive Date: 20120920
  Receipt Date: 20120920
  Transmission Date: 20130627
  Serious: Yes (Life-Threatening, Hospitalization)
  Sender: FDA-Public Use
  Company Number: US-BAYER-2012-097112

PATIENT
  Age: 21 Year
  Sex: Female
  Weight: 88.44 kg

DRUGS (11)
  1. YAZ [Suspect]
     Indication: CONTRACEPTION
     Dosage: UNK
     Dates: start: 20100208, end: 20100406
  2. YAZ [Suspect]
     Indication: HYPERANDROGENISM
  3. YAZ [Suspect]
     Indication: POLYCYSTIC OVARIES
  4. GIANVI [Suspect]
     Indication: CONTRACEPTION
     Dosage: UNK
     Dates: start: 20100803, end: 20110117
  5. GIANVI [Suspect]
     Indication: HYPERANDROGENISM
  6. GIANVI [Suspect]
     Indication: POLYCYSTIC OVARIES
  7. LORTAB [Concomitant]
  8. PROTONIX [Concomitant]
  9. TYLENOL [Concomitant]
  10. ALBUTEROL [Concomitant]
  11. ZOLPIDEM [Concomitant]

REACTIONS (9)
  - Pulmonary embolism [None]
  - Deep vein thrombosis [None]
  - Chest pain [None]
  - Dyspnoea [None]
  - Wheezing [None]
  - Dizziness [None]
  - Anxiety [None]
  - Depression [None]
  - Fear [None]
